FAERS Safety Report 12631611 (Version 2)
Quarter: 2016Q3

REPORT INFORMATION
  Report Type: Spontaneous
  Country: US (occurrence: US)
  Receive Date: 20160808
  Receipt Date: 20160808
  Transmission Date: 20161109
  Serious: No
  Sender: FDA-Public Use
  Company Number: US-BEH-2015054894

PATIENT
  Sex: Female
  Weight: 104 kg

DRUGS (24)
  1. CENTRUM SILVER [Concomitant]
     Active Substance: MINERALS\VITAMINS
  2. FLAXSEED [Concomitant]
     Active Substance: FLAX SEED
  3. ALLEGRA [Concomitant]
     Active Substance: FEXOFENADINE HYDROCHLORIDE
  4. ACETAMINOPHEN. [Concomitant]
     Active Substance: ACETAMINOPHEN
  5. DIPHENHYDRAMINE. [Concomitant]
     Active Substance: DIPHENHYDRAMINE
  6. EPIPEN [Concomitant]
     Active Substance: EPINEPHRINE
     Indication: ANAPHYLACTIC REACTION
  7. GLUCOPHAGE [Concomitant]
     Active Substance: METFORMIN HYDROCHLORIDE
  8. PREDNISONE. [Concomitant]
     Active Substance: PREDNISONE
  9. ASPIRIN. [Concomitant]
     Active Substance: ASPIRIN
  10. VITAMIN D [Concomitant]
     Active Substance: CHOLECALCIFEROL
  11. HIZENTRA [Suspect]
     Active Substance: HUMAN IMMUNOGLOBULIN G
     Indication: IMMUNODEFICIENCY COMMON VARIABLE
     Route: 058
  12. LIDOCAINE. [Concomitant]
     Active Substance: LIDOCAINE
  13. LIPITOR [Concomitant]
     Active Substance: ATORVASTATIN CALCIUM
  14. ACTOS [Concomitant]
     Active Substance: PIOGLITAZONE HYDROCHLORIDE
  15. CIPRO HC [Concomitant]
     Active Substance: CIPROFLOXACIN HYDROCHLORIDE\HYDROCORTISONE
  16. CALCIUM MAGNESIUM ZINC VIT D [Concomitant]
  17. SINGULAIR [Concomitant]
     Active Substance: MONTELUKAST SODIUM
  18. TEKTURNA [Concomitant]
     Active Substance: ALISKIREN HEMIFUMARATE
  19. ADVAIR HFA [Concomitant]
     Active Substance: FLUTICASONE PROPIONATE\SALMETEROL XINAFOATE
  20. CELEXA [Concomitant]
     Active Substance: CITALOPRAM HYDROBROMIDE
  21. COMBIVENT [Concomitant]
     Active Substance: ALBUTEROL SULFATE\IPRATROPIUM BROMIDE
  22. LEVAQUIN [Concomitant]
     Active Substance: LEVOFLOXACIN
  23. FOSAMAX [Concomitant]
     Active Substance: ALENDRONATE SODIUM
  24. FISH OIL [Concomitant]
     Active Substance: FISH OIL

REACTIONS (1)
  - Application site erythema [Unknown]
